FAERS Safety Report 12047060 (Version 1)
Quarter: 2016Q1

REPORT INFORMATION
  Report Type: Spontaneous
  Country: US (occurrence: US)
  Receive Date: 20160208
  Receipt Date: 20160208
  Transmission Date: 20160526
  Serious: No
  Sender: FDA-Public Use
  Company Number: US-GLAXOSMITHKLINE-US2016017292

PATIENT
  Age: 67 Year
  Sex: Male

DRUGS (1)
  1. ABREVA [Suspect]
     Active Substance: DOCOSANOL
     Indication: ORAL HERPES
     Dosage: 2 G, QID
     Dates: start: 201601

REACTIONS (2)
  - Incorrect drug administration duration [Unknown]
  - Inappropriate schedule of drug administration [Unknown]
